FAERS Safety Report 14925004 (Version 1)
Quarter: 2018Q2

REPORT INFORMATION
  Report Type: Spontaneous
  Country: US (occurrence: US)
  Receive Date: 20180504
  Receipt Date: 20180504
  Transmission Date: 20180711
  Serious: Yes (Disabling)
  Sender: FDA-Public Use
  Company Number: None

PATIENT
  Age: 26 Year
  Sex: Female
  Weight: 51.75 kg

DRUGS (4)
  1. CIPROFLAXIN 500MG [Suspect]
     Active Substance: CIPROFLOXACIN
     Indication: URINARY TRACT INFECTION BACTERIAL
     Dosage: ?          QUANTITY:1 TABLET(S);?
     Route: 048
     Dates: start: 20180502, end: 20180503
  2. PROBIOTIC [Concomitant]
     Active Substance: PROBIOTICS NOS
  3. SKYLA [Concomitant]
     Active Substance: LEVONORGESTREL
  4. FISH OIL [Concomitant]
     Active Substance: FISH OIL

REACTIONS (6)
  - Abdominal discomfort [None]
  - Anxiety [None]
  - Palpitations [None]
  - Pain [None]
  - Paraesthesia [None]
  - Chest pain [None]

NARRATIVE: CASE EVENT DATE: 20180503
